FAERS Safety Report 7783848-5 (Version None)
Quarter: 2011Q3

REPORT INFORMATION
  Report Type: 
  Country: None (occurrence: None)
  Receive Date: 20110928
  Receipt Date: 20110920
  Transmission Date: 20111222
  Serious: Yes (Death, Life-Threatening)
  Sender: FDA-Public Use
  Company Number: CO-NOVOPROD-335213

PATIENT

DRUGS (4)
  1. NOVOSEVEN [Suspect]
     Indication: OFF LABEL USE
     Dosage: 60 MCG/KG, CENTRAL IV LINE 4 MIN. INFUSION
     Route: 042
     Dates: start: 20110915, end: 20110915
  2. CLOPIDOGREL [Concomitant]
     Dosage: UNK
     Dates: start: 20110915, end: 20110915
  3. ASPIRIN [Concomitant]
     Dosage: UNK
     Dates: start: 20110915, end: 20110915
  4. ENOXAPARIN [Concomitant]
     Dosage: UNK
     Dates: start: 20110915, end: 20110915

REACTIONS (2)
  - SHOCK [None]
  - PULMONARY HYPERTENSION [None]
